FAERS Safety Report 11754230 (Version 1)
Quarter: 2015Q4

REPORT INFORMATION
  Report Type: Spontaneous
  Country: FR (occurrence: FR)
  Receive Date: 20151119
  Receipt Date: 20151119
  Transmission Date: 20160304
  Serious: Yes (Hospitalization)
  Sender: FDA-Public Use
  Company Number: FR-AUROBINDO-AUR-APL-2015-10291

PATIENT
  Age: 87 Year
  Sex: Male

DRUGS (14)
  1. ZOLPIDEM [Suspect]
     Active Substance: ZOLPIDEM\ZOLPIDEM TARTRATE
     Indication: PRODUCT USED FOR UNKNOWN INDICATION
     Dosage: 1 DF, ONCE A DAY IN EVENING
     Route: 048
     Dates: start: 20150828, end: 20150830
  2. CEFEPIME [Suspect]
     Active Substance: CEFEPIME HYDROCHLORIDE
     Indication: PRODUCT USED FOR UNKNOWN INDICATION
     Dosage: 2 G, EVERY 12 HOURS
     Route: 042
     Dates: start: 20150827, end: 20150831
  3. CALCIPARINE [Suspect]
     Active Substance: HEPARIN CALCIUM
     Indication: PRODUCT USED FOR UNKNOWN INDICATION
     Dosage: 1 DF, IN THE MORNING AND EVENING
     Route: 058
  4. BROMAZEPAM TABLET [Suspect]
     Active Substance: BROMAZEPAM
     Indication: PRODUCT USED FOR UNKNOWN INDICATION
     Dosage: 0.25 DF, ONCE A DAYIN EVENING
     Route: 048
     Dates: start: 20150828, end: 20150830
  5. ESCITALOPRAM ARROW FILM-COATED TABLETS [Suspect]
     Active Substance: ESCITALOPRAM OXALATE
     Indication: PRODUCT USED FOR UNKNOWN INDICATION
     Dosage: 1 DF, ONCE A DAY IN EVENING
     Route: 048
     Dates: start: 20150820, end: 201509
  6. PANTOPRAZOLE SODIUM. [Suspect]
     Active Substance: PANTOPRAZOLE SODIUM
     Indication: PRODUCT USED FOR UNKNOWN INDICATION
     Dosage: 1 DF, ONCE A DAY, IN MORNING
     Route: 048
     Dates: start: 20150828, end: 201509
  7. FEROGRAD [Suspect]
     Active Substance: ASCORBIC ACID\FERROUS SULFATE
     Indication: PRODUCT USED FOR UNKNOWN INDICATION
     Dosage: 1 DF, IN THE MORNING AND EVENING
     Route: 048
     Dates: start: 20150828, end: 201509
  8. KARDEGIC [Suspect]
     Active Substance: ASPIRIN LYSINE
     Indication: PRODUCT USED FOR UNKNOWN INDICATION
     Dosage: 1 SACHET AT NOON
     Dates: start: 20150828
  9. PRAVASTATIN ARROW TABLETS 40MG [Suspect]
     Active Substance: PRAVASTATIN\PRAVASTATIN SODIUM
     Indication: PRODUCT USED FOR UNKNOWN INDICATION
     Dosage: 1 DF, ONCE A DAY IN EVENING
     Route: 048
     Dates: start: 20150828, end: 201509
  10. EZETROL [Suspect]
     Active Substance: EZETIMIBE
     Indication: PRODUCT USED FOR UNKNOWN INDICATION
     Dosage: 1 DF, IN EVENING
     Route: 048
     Dates: start: 20150828, end: 201509
  11. VITAMIN B [Concomitant]
     Active Substance: VITAMIN B
     Indication: PRODUCT USED FOR UNKNOWN INDICATION
     Dosage: 1 TABLET MORNING
     Dates: start: 20150828
  12. LASILIX                            /00032601/ [Suspect]
     Active Substance: FUROSEMIDE
     Indication: PRODUCT USED FOR UNKNOWN INDICATION
     Dosage: 0.5 DF, ONCE A DAY
     Route: 048
     Dates: start: 20150828
  13. IKOREL [Concomitant]
     Active Substance: NICORANDIL
     Indication: PRODUCT USED FOR UNKNOWN INDICATION
     Dosage: 0.5 TABLET MORNING, AND 0.75 TABLET EVENING
     Dates: start: 20150828
  14. ALDACTONE [Concomitant]
     Active Substance: SPIRONOLACTONE
     Indication: PRODUCT USED FOR UNKNOWN INDICATION
     Dosage: I TABLET AT NOON
     Dates: start: 20150828

REACTIONS (13)
  - Confusional state [Recovered/Resolved]
  - Dysphagia [Unknown]
  - Platelet count decreased [None]
  - Agitation [Unknown]
  - C-reactive protein increased [Unknown]
  - Acute kidney injury [Unknown]
  - Uraemic encephalopathy [Unknown]
  - Incoherent [Recovered/Resolved]
  - Blood urea increased [Unknown]
  - Encephalopathy [Recovered/Resolved]
  - Blood creatinine increased [Unknown]
  - Condition aggravated [Unknown]
  - Clonus [Unknown]

NARRATIVE: CASE EVENT DATE: 20150830
